FAERS Safety Report 8305554-0 (Version None)
Quarter: 2012Q2

REPORT INFORMATION
  Report Type: 
  Country: None (occurrence: None)
  Receive Date: 20120423
  Receipt Date: 20120418
  Transmission Date: 20120825
  Serious: Yes (Hospitalization, Other)
  Sender: FDA-Public Use
  Company Number: US-MERCK-1202USA02808

PATIENT
  Age: 71 Year
  Sex: Female

DRUGS (6)
  1. FOSAMAX [Suspect]
     Route: 048
     Dates: start: 20091101, end: 20100101
  2. VITAMINS (UNSPECIFIED) [Concomitant]
     Route: 048
  3. FOSAMAX [Suspect]
     Route: 048
     Dates: start: 20070901, end: 20071201
  4. BONIVA [Suspect]
     Indication: OSTEOPOROSIS
     Route: 048
     Dates: start: 20080101, end: 20091001
  5. ACTONEL [Suspect]
     Indication: OSTEOPOROSIS
     Route: 048
     Dates: start: 20070101
  6. FOSAMAX [Suspect]
     Indication: OSTEOPOROSIS
     Route: 048
     Dates: start: 20050101, end: 20070701

REACTIONS (6)
  - ROAD TRAFFIC ACCIDENT [None]
  - ARTHRALGIA [None]
  - BLOOD CHOLESTEROL INCREASED [None]
  - FEMUR FRACTURE [None]
  - SQUAMOUS CELL CARCINOMA [None]
  - HYPERTENSION [None]
